FAERS Safety Report 11004072 (Version 10)
Quarter: 2015Q4

REPORT INFORMATION
  Report Type: Report from Study
  Country: CA (occurrence: CA)
  Receive Date: 20150409
  Receipt Date: 20151113
  Transmission Date: 20160304
  Serious: Yes (Life-Threatening, Hospitalization, Other)
  Sender: FDA-Public Use
  Company Number: CA-ROCHE-1545589

PATIENT
  Age: 40 Year
  Sex: Female
  Weight: 48 kg

DRUGS (8)
  1. ACTEMRA [Suspect]
     Active Substance: TOCILIZUMAB
     Indication: TAKAYASU^S ARTERITIS
     Route: 042
     Dates: start: 20150128, end: 2015
  2. METHOTREXATE [Concomitant]
     Active Substance: METHOTREXATE
  3. PREDNISONE. [Concomitant]
     Active Substance: PREDNISONE
  4. INH [Concomitant]
     Active Substance: ISONIAZID
  5. PREVNAR [Concomitant]
     Active Substance: PNEUMOCOCCAL 7-VALENT CONJUGATE VACCINE (DIPHTHERIA CRM197 PROTEIN)
  6. TETANUS (UNK INGREDIENTS) [Concomitant]
  7. IMURAN [Concomitant]
     Active Substance: AZATHIOPRINE
  8. PNEUMOVAX 23 [Concomitant]
     Active Substance: PNEUMOCOCCAL VACCINE, POLYVALENT 23

REACTIONS (14)
  - Blood pressure increased [Unknown]
  - Urinary tract infection [Recovered/Resolved]
  - Drug dose omission [Unknown]
  - Weight decreased [Unknown]
  - Fatigue [Not Recovered/Not Resolved]
  - Infection [Unknown]
  - Oxygen saturation decreased [Unknown]
  - Ill-defined disorder [Unknown]
  - Gait disturbance [Not Recovered/Not Resolved]
  - Herpes zoster [Unknown]
  - Off label use [Unknown]
  - Lung infection [Unknown]
  - Cellulitis [Recovering/Resolving]
  - Pallor [Unknown]

NARRATIVE: CASE EVENT DATE: 20150819
